FAERS Safety Report 9960304 (Version 1)
Quarter: 2014Q1

REPORT INFORMATION
  Report Type: Spontaneous
  Country: GB (occurrence: GB)
  Receive Date: 20140305
  Receipt Date: 20140305
  Transmission Date: 20141002
  Serious: Yes (Disabling)
  Sender: FDA-Public Use
  Company Number: GB-JNJFOC-20140218381

PATIENT
  Age: 52 Year
  Sex: Male

DRUGS (3)
  1. XARELTO [Suspect]
     Indication: PRODUCT USED FOR UNKNOWN INDICATION
     Route: 048
     Dates: start: 201310
  2. LEVOTHYROXINE [Concomitant]
     Indication: THYROID DISORDER
     Route: 048
     Dates: start: 1999
  3. CO-CODAMOL [Concomitant]
     Indication: PAIN
     Route: 048
     Dates: start: 1994

REACTIONS (2)
  - Heart rate increased [Not Recovered/Not Resolved]
  - Tachyarrhythmia [Not Recovered/Not Resolved]
